FAERS Safety Report 6112611-6 (Version None)
Quarter: 2009Q1

REPORT INFORMATION
  Report Type: 
  Country: None (occurrence: None)
  Receive Date: 20090312
  Receipt Date: 20090303
  Transmission Date: 20090719
  Serious: Yes (Other)
  Sender: FDA-Public Use
  Company Number: DE-BAXTER-2008BH011425

PATIENT
  Age: 4 Year
  Sex: Female
  Weight: 11 kg

DRUGS (7)
  1. GAMMAGARD LIQUID [Suspect]
     Indication: CONGENITAL APLASTIC ANAEMIA
     Route: 042
  2. GAMMAGARD LIQUID [Suspect]
     Indication: INFECTION
     Route: 042
  3. LEFAX [Concomitant]
     Indication: DRUG USE FOR UNKNOWN INDICATION
     Route: 048
  4. SODIUM CHLORIDE [Concomitant]
     Indication: DRUG USE FOR UNKNOWN INDICATION
     Route: 055
  5. AMBROXOL [Concomitant]
     Indication: DRUG USE FOR UNKNOWN INDICATION
     Route: 048
  6. GERNEBCIN [Concomitant]
     Indication: INFECTION
     Route: 042
  7. TAZOBAC [Concomitant]
     Indication: INFECTION
     Route: 042

REACTIONS (6)
  - BLOOD PRESSURE DECREASED [None]
  - CHILLS [None]
  - COUGH [None]
  - CYANOSIS [None]
  - DYSPNOEA [None]
  - RASH [None]
